FAERS Safety Report 9916625 (Version 3)
Quarter: 2014Q1

REPORT INFORMATION
  Report Type: Spontaneous
  Country: ZA (occurrence: ZA)
  Receive Date: 20140221
  Receipt Date: 20140325
  Transmission Date: 20141002
  Serious: Yes (Death, Other)
  Sender: FDA-Public Use
  Company Number: ZA-BAYER-2014-020874

PATIENT
  Age: 17 Year
  Sex: Female

DRUGS (1)
  1. CIPROBAY XR 1000 [Suspect]

REACTIONS (1)
  - Anaphylactic reaction [Fatal]
